FAERS Safety Report 6583334-4 (Version None)
Quarter: 2010Q1

REPORT INFORMATION
  Report Type: 
  Country: None (occurrence: None)
  Receive Date: 20100216
  Receipt Date: 20100208
  Transmission Date: 20100710
  Serious: Yes (Death, Hospitalization)
  Sender: FDA-Public Use
  Company Number: US-GENENTECH-296321

PATIENT
  Sex: Female
  Weight: 47.7 kg

DRUGS (8)
  1. OMALIZUMAB [Suspect]
     Indication: ASTHMA
     Dosage: UNK
     Route: 058
     Dates: start: 20050711, end: 20080623
  2. PREDNISONE [Concomitant]
     Indication: DRUG USE FOR UNKNOWN INDICATION
  3. SYMBICORT [Concomitant]
     Indication: DRUG USE FOR UNKNOWN INDICATION
  4. THEOPHYLLINE [Concomitant]
     Indication: DRUG USE FOR UNKNOWN INDICATION
  5. UNIPHYL [Concomitant]
     Indication: DRUG USE FOR UNKNOWN INDICATION
  6. PROAIR HFA [Concomitant]
     Indication: DRUG USE FOR UNKNOWN INDICATION
  7. ORTHO-NOVUM [Concomitant]
     Indication: DRUG USE FOR UNKNOWN INDICATION
  8. INHALER (TYPE UNKNOWN) [Concomitant]
     Indication: DRUG USE FOR UNKNOWN INDICATION

REACTIONS (2)
  - ASTHMA [None]
  - RESPIRATORY DISTRESS [None]
